FAERS Safety Report 4496860-9 (Version None)
Quarter: 2004Q4

REPORT INFORMATION
  Report Type: 
  Country: None (occurrence: None)
  Receive Date: 20041109
  Receipt Date: 20041028
  Transmission Date: 20050328
  Serious: Yes (Hospitalization)
  Sender: FDA-Public Use
  Company Number: CH-GLAXOSMITHKLINE-B0350604A

PATIENT
  Age: 62 Year
  Sex: Female

DRUGS (3)
  1. DEROXAT [Suspect]
     Indication: DEPRESSION
     Dosage: 10MG PER DAY
     Route: 048
     Dates: start: 20040501, end: 20041005
  2. ENALAPRIL [Suspect]
     Indication: HYPERTENSION
     Dosage: 20MG PER DAY
     Route: 048
     Dates: start: 20010101
  3. TIATRAL [Concomitant]
     Dosage: 100MG PER DAY
     Route: 048
     Dates: start: 20010101

REACTIONS (2)
  - FALL [None]
  - SYNCOPE [None]
